FAERS Safety Report 23275929 (Version 1)
Quarter: 2023Q4

REPORT INFORMATION
  Report Type: Spontaneous
  Country: US (occurrence: None)
  Receive Date: 20231207
  Receipt Date: 20231207
  Transmission Date: 20240110
  Serious: No
  Sender: FDA-Public Use
  Company Number: None

PATIENT
  Sex: Female

DRUGS (1)
  1. REMODULIN [Suspect]
     Active Substance: TREPROSTINIL
     Indication: Pulmonary arterial hypertension
     Dosage: OTHER QUANTITY : 34.9NG/KG/MIN;?OTHER FREQUENCY : CONTINUOUS;?
     Route: 042
     Dates: start: 202206

REACTIONS (1)
  - Device malfunction [None]
